FAERS Safety Report 7057245-4 (Version None)
Quarter: 2010Q4

REPORT INFORMATION
  Report Type: 
  Country: None (occurrence: None)
  Receive Date: 20101021
  Receipt Date: 20101021
  Transmission Date: 20110411
  Serious: No
  Sender: FDA-Public Use
  Company Number: None

PATIENT
  Sex: Female
  Weight: 107.9561 kg

DRUGS (1)
  1. PERCOCET 10/650 MALLINCKRODT [Suspect]
     Indication: PAIN
     Dosage: 1 QID (MONTH)
     Dates: start: 20100917, end: 20101017

REACTIONS (1)
  - TREATMENT FAILURE [None]
